FAERS Safety Report 8605530-4 (Version None)
Quarter: 2012Q3

REPORT INFORMATION
  Report Type: 
  Country: None (occurrence: None)
  Receive Date: 20120820
  Receipt Date: 20120814
  Transmission Date: 20120928
  Serious: Yes (Other)
  Sender: FDA-Public Use
  Company Number: US-INCYTE CORPORATION-2012IN001519

PATIENT
  Sex: Male

DRUGS (5)
  1. JAKAFI [Suspect]
     Indication: MYELOFIBROSIS
     Dosage: 15 MG, BID
     Dates: end: 20120705
  2. JAKAFI [Suspect]
     Dosage: 7.5 MG, TID
     Dates: start: 20120706, end: 20120731
  3. JAKAFI [Suspect]
     Dosage: 7.5 MG, BID
     Dates: start: 20120801
  4. ZOMIG [Concomitant]
  5. MELATONIN [Concomitant]

REACTIONS (4)
  - DRUG INEFFECTIVE [None]
  - BLOOD PRODUCT TRANSFUSION DEPENDENT [None]
  - THROMBOSIS [None]
  - MEDICATION ERROR [None]
